FAERS Safety Report 7359588-3 (Version None)
Quarter: 2011Q1

REPORT INFORMATION
  Report Type: 
  Country: None (occurrence: None)
  Receive Date: 20110317
  Receipt Date: 20100122
  Transmission Date: 20110831
  Serious: No
  Sender: FDA-Public Use
  Company Number: US-PFIZER INC-2010009888

PATIENT
  Age: 73 Year
  Sex: Female
  Weight: 52.2 kg

DRUGS (2)
  1. NORVASC [Suspect]
     Dosage: UNK
  2. COZAAR [Suspect]
     Dosage: UNK

REACTIONS (1)
  - HYPOGEUSIA [None]
